FAERS Safety Report 7355941-2 (Version None)
Quarter: 2011Q1

REPORT INFORMATION
  Report Type: 
  Country: None (occurrence: None)
  Receive Date: 20110307
  Receipt Date: 20110224
  Transmission Date: 20110831
  Serious: Yes (Hospitalization)
  Sender: FDA-Public Use
  Company Number: LEO-2011-00115

PATIENT
  Age: 31 Year
  Sex: Female
  Weight: 68.2 kg

DRUGS (1)
  1. TACLONEX SCALP [Suspect]
     Indication: PSORIASIS
     Dosage: (1 DOSAGE FORMS,1 IN 1 D), TROPICAL
     Route: 061
     Dates: start: 20101116, end: 20110108

REACTIONS (1)
  - NEPHROLITHIASIS [None]
